FAERS Safety Report 18171372 (Version 2)
Quarter: 2020Q3

REPORT INFORMATION
  Report Type: Report from Study
  Country: GB (occurrence: GB)
  Receive Date: 20200819
  Receipt Date: 20200902
  Transmission Date: 20201103
  Serious: Yes (Other)
  Sender: FDA-Public Use
  Company Number: GB-SAMSUNG BIOEPIS-SB-2020-26032

PATIENT
  Sex: Female

DRUGS (1)
  1. BENEPALI [Suspect]
     Active Substance: ETANERCEPT
     Indication: RHEUMATOID ARTHRITIS
     Route: 058
     Dates: start: 20200804

REACTIONS (4)
  - Fear of injection [Unknown]
  - Hypotension [Unknown]
  - Adverse drug reaction [Unknown]
  - Syncope [Unknown]
